FAERS Safety Report 25516696 (Version 3)
Quarter: 2025Q4

REPORT INFORMATION
  Report Type: Report from Study
  Country: US (occurrence: US)
  Receive Date: 20250704
  Receipt Date: 20251011
  Transmission Date: 20260117
  Serious: Yes (Hospitalization, Other)
  Sender: ABBVIE
  Company Number: US-ABBVIE-6355600

PATIENT
  Age: 71 Year
  Sex: Female

DRUGS (3)
  1. SKYRIZI [Suspect]
     Active Substance: RISANKIZUMAB-RZAA
     Indication: Psoriatic arthropathy
     Route: 058
     Dates: start: 20220903
  2. SKYRIZI [Suspect]
     Active Substance: RISANKIZUMAB-RZAA
     Route: 058
     Dates: start: 20230901, end: 20250401
  3. SKYRIZI [Suspect]
     Active Substance: RISANKIZUMAB-RZAA
     Route: 058
     Dates: end: 20250607

REACTIONS (6)
  - Haemorrhage [Unknown]
  - Abdominal abscess [Not Recovered/Not Resolved]
  - Gastrointestinal disorder [Unknown]
  - Abdominal infection [Not Recovered/Not Resolved]
  - Abscess drainage [Unknown]
  - Incision site impaired healing [Unknown]

NARRATIVE: CASE EVENT DATE: 20250101
